FAERS Safety Report 20067906 (Version 1)
Quarter: 2021Q4

REPORT INFORMATION
  Report Type: Spontaneous
  Country: CA (occurrence: None)
  Receive Date: 20211115
  Receipt Date: 20211115
  Transmission Date: 20220303
  Serious: Yes (Other)
  Sender: FDA-Public Use
  Company Number: CA-PFIZER INC-202101351840

PATIENT
  Age: 77 Year
  Sex: Female
  Weight: 65 kg

DRUGS (3)
  1. METHOTREXATE [Suspect]
     Active Substance: METHOTREXATE
     Indication: Product used for unknown indication
     Route: 065
  2. ETANERCEPT [Concomitant]
     Active Substance: ETANERCEPT
     Dosage: 1 DF (80 MG WEEKLY, UNK START AND STOP DATES)
     Route: 065
  3. PREDNISONE [Concomitant]
     Active Substance: PREDNISONE
     Dosage: DOSE OF PREDNISONE: 10 (UNIT UNKNOWN)
     Route: 065

REACTIONS (4)
  - Rheumatoid arthritis [Unknown]
  - Interstitial lung disease [Unknown]
  - Hypersensitivity [Unknown]
  - Pneumonitis [Not Recovered/Not Resolved]
